FAERS Safety Report 20985082 (Version 1)
Quarter: 2022Q2

REPORT INFORMATION
  Report Type: Spontaneous
  Country: IT (occurrence: IT)
  Receive Date: 20220621
  Receipt Date: 20220621
  Transmission Date: 20220720
  Serious: Yes (Other)
  Sender: FDA-Public Use
  Company Number: IT-MYLANLABS-2022M1044319

PATIENT
  Age: 42 Year
  Sex: Male

DRUGS (2)
  1. VELCADE [Suspect]
     Active Substance: BORTEZOMIB
     Indication: Acute myeloid leukaemia
     Dosage: UNK
     Route: 065
     Dates: start: 200806
  2. TIPIFARNIB [Suspect]
     Active Substance: TIPIFARNIB
     Indication: Acute myeloid leukaemia
     Dosage: UNK
     Route: 065
     Dates: start: 200806

REACTIONS (1)
  - Drug ineffective [Unknown]

NARRATIVE: CASE EVENT DATE: 20080101
